FAERS Safety Report 13815480 (Version 1)
Quarter: 2017Q3

REPORT INFORMATION
  Report Type: Spontaneous
  Country: US (occurrence: US)
  Receive Date: 20170731
  Receipt Date: 20170731
  Transmission Date: 20171127
  Serious: No
  Sender: FDA-Public Use
  Company Number: US-GLAXOSMITHKLINE-US2017113655

PATIENT
  Age: 84 Year
  Sex: Male

DRUGS (1)
  1. ABREVA [Suspect]
     Active Substance: DOCOSANOL
     Indication: ORAL HERPES
     Dosage: UNK, PUTTING IT ON FOR FIVE TIMES A DAY
     Dates: start: 20170709, end: 20170716

REACTIONS (1)
  - Incorrect drug administration duration [Unknown]
